FAERS Safety Report 23665453 (Version 1)
Quarter: 2024Q1

REPORT INFORMATION
  Report Type: Spontaneous
  Country: US (occurrence: US)
  Receive Date: 20240323
  Receipt Date: 20240323
  Transmission Date: 20240409
  Serious: Yes (Other)
  Sender: FDA-Public Use
  Company Number: US-JNJFOC-20240331193

PATIENT
  Age: 58 Year
  Sex: Male

DRUGS (4)
  1. SPORANOX [Suspect]
     Active Substance: ITRACONAZOLE
     Indication: Disseminated blastomycosis
     Dosage: 10 MILLIGRAMS PER MILLILITER, 20 MILLILITERS TWICE DAILY WITH A RECOMMENDED DURATION OF 12 MONTHS AS
     Route: 048
  2. AMPHOTERICIN B [Concomitant]
     Active Substance: AMPHOTERICIN B
     Indication: Disseminated blastomycosis
     Dosage: RECEIVING A TOTAL OF 17 TREATMENTS OVER A FIVE WEEK PERIOD, FOLLOWED BY A TRANSITION TO ORAL VORICON
     Route: 042
  3. VORICONAZOLE [Concomitant]
     Active Substance: VORICONAZOLE
     Indication: Disseminated blastomycosis
     Dosage: 300 MILLIGRAMS ONCE DAILY FOR A ONE-YEAR TREATMENT PERIOD.
     Route: 048
  4. ITRACONAZOLE [Concomitant]
     Active Substance: ITRACONAZOLE
     Indication: Disseminated blastomycosis
     Dosage: 400 MILLIGRAMS OF ITRACONAZOLE VIA CAPSULE FORM FOR 12 MONTHS.
     Route: 048

REACTIONS (1)
  - Seizure [Recovered/Resolved]
